FAERS Safety Report 7638633-1 (Version None)
Quarter: 2011Q3

REPORT INFORMATION
  Report Type: 
  Country: None (occurrence: None)
  Receive Date: 20110727
  Receipt Date: 20110715
  Transmission Date: 20111222
  Serious: Yes (Hospitalization, Other)
  Sender: FDA-Public Use
  Company Number: ES-PFIZER INC-2011169162

PATIENT
  Age: 82 Year
  Sex: Male

DRUGS (7)
  1. TRAZODONE HCL [Suspect]
     Indication: DEPRESSION
     Dosage: UNK
     Route: 048
     Dates: start: 20110301, end: 20110525
  2. LORAZEPAM [Concomitant]
     Indication: DEPRESSION
     Dosage: UNK
     Route: 048
     Dates: start: 20100101
  3. IBUPROFEN [Concomitant]
     Dosage: UNK
     Route: 048
     Dates: start: 20110201
  4. VENLAFAXINE HCL [Suspect]
     Indication: DEPRESSION
     Dosage: 150 MG, UNK
     Route: 048
     Dates: end: 20110525
  5. VOLTAREN EMULGEL ^NOVARTIS^ [Concomitant]
     Dosage: UNK
     Route: 061
     Dates: start: 20100201
  6. ENANTYUM [Concomitant]
     Dosage: 25 MG, UNK
     Route: 048
     Dates: start: 20101101
  7. DUPHALAC [Concomitant]

REACTIONS (2)
  - HEPATITIS C [None]
  - HEPATITIS ACUTE [None]
